FAERS Safety Report 4319430-1 (Version None)
Quarter: 2004Q1

REPORT INFORMATION
  Report Type: 
  Country: None (occurrence: None)
  Receive Date: 20040316
  Receipt Date: 20040303
  Transmission Date: 20041129
  Serious: Yes (Life-Threatening)
  Sender: FDA-Public Use
  Company Number: USA040360877

PATIENT
  Sex: Male

DRUGS (1)
  1. FORTEO [Suspect]

REACTIONS (3)
  - ANOXIC ENCEPHALOPATHY [None]
  - CARDIAC ARREST [None]
  - MYOCARDIAL INFARCTION [None]
